FAERS Safety Report 7077924-2 (Version None)
Quarter: 2010Q4

REPORT INFORMATION
  Report Type: 
  Country: None (occurrence: None)
  Receive Date: 20101101
  Receipt Date: 20101025
  Transmission Date: 20110411
  Serious: Yes (Other)
  Sender: FDA-Public Use
  Company Number: US-PFIZER INC-2010135877

PATIENT
  Sex: Male
  Weight: 84.9 kg

DRUGS (5)
  1. LIPITOR [Suspect]
     Dosage: UNK
  2. DILANTIN [Suspect]
  3. SIMVASTATIN [Suspect]
     Dosage: UNK
  4. LOVASTATIN [Suspect]
  5. COZAAR [Suspect]

REACTIONS (6)
  - BLOOD CHOLESTEROL INCREASED [None]
  - CAROTID ARTERY OCCLUSION [None]
  - CEREBROVASCULAR ACCIDENT [None]
  - CONVULSION [None]
  - PROCEDURAL COMPLICATION [None]
  - TRANSIENT ISCHAEMIC ATTACK [None]
